FAERS Safety Report 9768304 (Version 2)
Quarter: 2014Q1

REPORT INFORMATION
  Report Type: Spontaneous
  Country: US (occurrence: US)
  Receive Date: 20131217
  Receipt Date: 20140120
  Transmission Date: 20141002
  Serious: Yes (Death)
  Sender: FDA-Public Use
  Company Number: US-ACTELION-A-NJ2013-92347

PATIENT
  Age: 71 Year
  Sex: Female

DRUGS (11)
  1. OPSUMIT [Suspect]
     Indication: PULMONARY ARTERIAL HYPERTENSION
     Route: 048
  2. ADVAIR [Concomitant]
  3. DIGOXIN [Concomitant]
  4. SILDENAFIL [Concomitant]
  5. LUNESTA [Concomitant]
  6. NEXIUM [Concomitant]
  7. COUMADIN [Concomitant]
  8. SYNTHROID [Concomitant]
  9. SPIRIVA [Concomitant]
  10. FLUOXETINE [Concomitant]
  11. MULTIVITAMIN [Concomitant]

REACTIONS (1)
  - Pancreatic carcinoma [Fatal]
